FAERS Safety Report 6509465-2 (Version None)
Quarter: 2009Q4

REPORT INFORMATION
  Report Type: 
  Country: None (occurrence: None)
  Receive Date: 20091217
  Receipt Date: 20090904
  Transmission Date: 20100525
  Serious: Yes (Hospitalization)
  Sender: FDA-Public Use
  Company Number: 014587

PATIENT
  Age: 64 Year
  Sex: Male

DRUGS (7)
  1. PRIALT [Suspect]
     Indication: NEURALGIA
     Dosage: SEE IMAGE
     Route: 037
     Dates: start: 20090427, end: 20090101
  2. PRIALT [Suspect]
     Indication: NEURALGIA
     Dosage: SEE IMAGE
     Route: 037
     Dates: start: 20090412, end: 20090401
  3. PRIALT [Suspect]
     Indication: NEURALGIA
     Dosage: SEE IMAGE
     Route: 037
     Dates: start: 20090425, end: 20090401
  4. PRIALT [Suspect]
     Indication: NEURALGIA
     Dosage: SEE IMAGE
     Route: 037
     Dates: start: 20090505, end: 20090501
  5. PRIALT [Suspect]
     Indication: NEURALGIA
     Dosage: SEE IMAGE
     Route: 037
     Dates: start: 20090501, end: 20090525
  6. MORPHINE [Concomitant]
  7. CATAPRES [Concomitant]

REACTIONS (8)
  - AGGRESSION [None]
  - AGITATION [None]
  - CONFUSIONAL STATE [None]
  - DYSPHORIA [None]
  - ESCHERICHIA SEPSIS [None]
  - HALLUCINATION [None]
  - SUICIDE ATTEMPT [None]
  - URINARY TRACT INFECTION [None]
